FAERS Safety Report 4701248-9 (Version None)
Quarter: 2005Q2

REPORT INFORMATION
  Report Type: 
  Country: None (occurrence: None)
  Receive Date: 20050628
  Receipt Date: 20050216
  Transmission Date: 20051028
  Serious: Yes (Death, Hospitalization, Other)
  Sender: FDA-Public Use
  Company Number: US-MERCK-0502USA02334

PATIENT
  Age: 46 Year
  Sex: Male
  Weight: 98 kg

DRUGS (13)
  1. VIOXX [Suspect]
     Indication: ARTHRITIS
     Route: 048
     Dates: start: 20000101, end: 20020910
  2. REGLAN [Concomitant]
     Route: 065
  3. PROCARDIA XL [Concomitant]
     Route: 065
  4. PROCARDIA XL [Concomitant]
     Route: 065
  5. TEGRETOL [Concomitant]
     Route: 065
  6. ULTRAM [Concomitant]
     Indication: PAIN
     Route: 065
  7. ZANTAC [Concomitant]
     Indication: DYSPEPSIA
     Route: 065
  8. LASIX [Concomitant]
     Route: 065
  9. LASIX [Concomitant]
     Route: 065
  10. LIPITOR [Concomitant]
     Route: 065
  11. ELAVIL [Concomitant]
     Route: 048
  12. PAXIL [Concomitant]
     Route: 065
  13. TUMS [Concomitant]
     Route: 065
     Dates: start: 20011219

REACTIONS (12)
  - ACUTE MYOCARDIAL INFARCTION [None]
  - CARDIAC VALVE DISEASE [None]
  - CARDIO-RESPIRATORY ARREST [None]
  - EYE HAEMORRHAGE [None]
  - LOSS OF CONSCIOUSNESS [None]
  - MYOCARDIAL ISCHAEMIA [None]
  - NEUROPATHY [None]
  - OEDEMA [None]
  - RHINORRHOEA [None]
  - SKIN FISSURES [None]
  - TACHYARRHYTHMIA [None]
  - VENTRICULAR FIBRILLATION [None]
